FAERS Safety Report 24334079 (Version 1)
Quarter: 2024Q3

REPORT INFORMATION
  Report Type: Spontaneous
  Country: US (occurrence: US)
  Receive Date: 20240918
  Receipt Date: 20240918
  Transmission Date: 20241016
  Serious: No
  Sender: SANOFI AVENTIS
  Company Number: US-SA-2024SA267927

PATIENT
  Age: 43 Year
  Sex: Male

DRUGS (1)
  1. DUPIXENT [Suspect]
     Active Substance: DUPILUMAB
     Indication: Eosinophilic oesophagitis
     Dosage: 300.000MG QW
     Route: 058
     Dates: start: 202405

REACTIONS (4)
  - Ocular hyperaemia [Not Recovered/Not Resolved]
  - Dry eye [Not Recovered/Not Resolved]
  - Eye pruritus [Not Recovered/Not Resolved]
  - Injection site bruising [Unknown]

NARRATIVE: CASE EVENT DATE: 20240501
